FAERS Safety Report 6092093-3 (Version None)
Quarter: 2009Q1

REPORT INFORMATION
  Report Type: 
  Country: None (occurrence: None)
  Receive Date: 20090219
  Receipt Date: 20081201
  Transmission Date: 20090719
  Serious: No
  Sender: FDA-Public Use
  Company Number: WAES 0808USA04607

PATIENT
  Age: 55 Year
  Sex: Male

DRUGS (4)
  1. JANUVIA [Suspect]
     Indication: DIABETES MELLITUS
     Dosage: 100 MG/DAILY/PO
     Route: 048
     Dates: start: 20081116, end: 20081124
  2. ATACAND [Concomitant]
  3. SYNTHROID [Concomitant]
  4. INSULIN [Concomitant]

REACTIONS (6)
  - BLOOD GLUCOSE DECREASED [None]
  - DEPRESSION [None]
  - HEADACHE [None]
  - NASAL CONGESTION [None]
  - SINUS DISORDER [None]
  - WEIGHT INCREASED [None]
